FAERS Safety Report 16995047 (Version 1)
Quarter: 2019Q4

REPORT INFORMATION
  Report Type: Spontaneous
  Country: US (occurrence: US)
  Receive Date: 20191105
  Receipt Date: 20191105
  Transmission Date: 20200122
  Serious: No
  Sender: FDA-Public Use
  Company Number: US-009507513-1910USA011710

PATIENT
  Age: 50 Year
  Sex: Male

DRUGS (4)
  1. AMPHOTERICIN B. [Concomitant]
     Active Substance: AMPHOTERICIN B
     Indication: MUCORMYCOSIS
  2. MEROPENEM. [Concomitant]
     Active Substance: MEROPENEM
     Indication: MUCORMYCOSIS
  3. VANCOMYCIN [Concomitant]
     Active Substance: VANCOMYCIN
     Indication: MUCORMYCOSIS
  4. NOXAFIL [Suspect]
     Active Substance: POSACONAZOLE
     Indication: MUCORMYCOSIS

REACTIONS (1)
  - Product use in unapproved indication [Unknown]
